FAERS Safety Report 11970622 (Version 1)
Quarter: 2016Q1

REPORT INFORMATION
  Report Type: Spontaneous
  Country: None (occurrence: None)
  Receive Date: 20160127
  Receipt Date: 20160127
  Transmission Date: 20160526
  Serious: Yes (Hospitalization, Other)
  Sender: FDA-Public Use
  Company Number: None

PATIENT
  Age: 51 Year
  Sex: Female

DRUGS (4)
  1. CEFTAZIDIME. [Concomitant]
     Active Substance: CEFTAZIDIME
  2. CEFTRIAXONE. [Suspect]
     Active Substance: CEFTRIAXONE
     Indication: RETROPERITONEAL EFFUSION
     Dates: start: 20150420, end: 20150504
  3. AZTREONAM. [Concomitant]
     Active Substance: AZTREONAM
  4. VANCOMYCIN [Suspect]
     Active Substance: VANCOMYCIN
     Indication: RETROPERITONEAL EFFUSION
     Dates: start: 20150417, end: 20150510

REACTIONS (2)
  - Drug reaction with eosinophilia and systemic symptoms [None]
  - Drug hypersensitivity [None]

NARRATIVE: CASE EVENT DATE: 20150511
